FAERS Safety Report 6684432-7 (Version None)
Quarter: 2010Q2

REPORT INFORMATION
  Report Type: 
  Country: None (occurrence: None)
  Receive Date: 20100416
  Receipt Date: 20100414
  Transmission Date: 20101027
  Serious: Yes (Other)
  Sender: FDA-Public Use
  Company Number: US-JNJFOC-20100308349

PATIENT
  Sex: Female
  Weight: 81.65 kg

DRUGS (8)
  1. LEVAQUIN [Suspect]
     Indication: DRUG USE FOR UNKNOWN INDICATION
     Route: 065
  2. VFEND [Interacting]
     Indication: LYMPHOMA
     Route: 065
  3. GABAPENTIN [Suspect]
     Indication: NEUROPATHY PERIPHERAL
     Route: 065
  4. PREDNISONE [Suspect]
     Indication: DRUG USE FOR UNKNOWN INDICATION
     Route: 065
  5. SODIUM [Concomitant]
     Route: 065
  6. MAGNESIUM [Concomitant]
     Route: 065
  7. DAPSONE [Concomitant]
     Route: 065
  8. TIMOLOL MALEATE [Concomitant]
     Indication: GLAUCOMA
     Route: 065

REACTIONS (29)
  - ABNORMAL DREAMS [None]
  - AGITATION [None]
  - ARTHROPATHY [None]
  - BALANCE DISORDER [None]
  - CONTUSION [None]
  - COUGH [None]
  - DECREASED APPETITE [None]
  - DEPRESSION [None]
  - DIZZINESS [None]
  - DRUG INTERACTION [None]
  - EPISTAXIS [None]
  - FATIGUE [None]
  - GAIT DISTURBANCE [None]
  - GINGIVAL BLEEDING [None]
  - GINGIVAL SWELLING [None]
  - GRAFT VERSUS HOST DISEASE [None]
  - LOSS OF CONSCIOUSNESS [None]
  - MEMORY IMPAIRMENT [None]
  - MUSCLE SPASMS [None]
  - MUSCULAR WEAKNESS [None]
  - NASAL CONGESTION [None]
  - OEDEMA PERIPHERAL [None]
  - PAIN [None]
  - PAIN IN EXTREMITY [None]
  - PHOTOSENSITIVITY REACTION [None]
  - SEXUAL DYSFUNCTION [None]
  - STOMATITIS [None]
  - SWELLING FACE [None]
  - TREMOR [None]
